FAERS Safety Report 6898551-3 (Version None)
Quarter: 2010Q3

REPORT INFORMATION
  Report Type: 
  Country: None (occurrence: None)
  Receive Date: 20100802
  Receipt Date: 20071030
  Transmission Date: 20110219
  Serious: Yes (Other)
  Sender: FDA-Public Use
  Company Number: US-PFIZER INC-2007091543

PATIENT
  Sex: Female
  Weight: 69.09 kg

DRUGS (12)
  1. LYRICA [Suspect]
     Indication: FIBROMYALGIA
     Dates: start: 20071029
  2. TRAZODONE [Concomitant]
  3. TEMAZEPAM [Concomitant]
  4. LIPITOR [Concomitant]
  5. PROTONIX [Concomitant]
  6. TETRACYCLINE [Concomitant]
  7. STRATTERA [Concomitant]
  8. SYNTHROID [Concomitant]
  9. CYMBALTA [Concomitant]
  10. PREMPRO [Concomitant]
  11. CALCIUM [Concomitant]
  12. COENZYME Q10 [Concomitant]

REACTIONS (3)
  - DIZZINESS [None]
  - IMPAIRED DRIVING ABILITY [None]
  - VISION BLURRED [None]
